FAERS Safety Report 9218015 (Version 1)
Quarter: 2013Q2

REPORT INFORMATION
  Report Type: Spontaneous
  Country: BD (occurrence: BD)
  Receive Date: 20130408
  Receipt Date: 20130408
  Transmission Date: 20140414
  Serious: Yes (Death)
  Sender: FDA-Public Use
  Company Number: PHHY2013BD033975

PATIENT
  Age: 96 Year
  Sex: Male

DRUGS (3)
  1. ACLASTA [Suspect]
     Indication: OSTEOPOROSIS
     Dosage: 5 MG IN 100 ML SOLUTION
     Route: 042
     Dates: start: 20091116
  2. ACLASTA [Suspect]
     Dosage: 5 MG IN 100 ML SOLUTION
     Route: 042
  3. ACLASTA [Suspect]
     Dosage: 5 MG IN 100 ML SOLUTION
     Route: 042
     Dates: start: 20120506

REACTIONS (1)
  - Death [Fatal]
